FAERS Safety Report 18586208 (Version 1)
Quarter: 2020Q4

REPORT INFORMATION
  Report Type: Spontaneous
  Country: PL (occurrence: PL)
  Receive Date: 20201207
  Receipt Date: 20201207
  Transmission Date: 20210114
  Serious: Yes (Other)
  Sender: FDA-Public Use
  Company Number: NVSC2020PL322821

PATIENT
  Age: 17 Year
  Sex: Female
  Weight: 43 kg

DRUGS (2)
  1. EDICIN [Suspect]
     Active Substance: VANCOMYCIN HYDROCHLORIDE
     Indication: SMEAR TEST
  2. EDICIN [Suspect]
     Active Substance: VANCOMYCIN HYDROCHLORIDE
     Indication: CULTURE URINE
     Dosage: 1 G, Q8H
     Route: 042
     Dates: start: 20180507, end: 20180507

REACTIONS (3)
  - Hypoaesthesia oral [Recovered/Resolved]
  - Erythema [Recovered/Resolved]
  - Pruritus [Recovered/Resolved]

NARRATIVE: CASE EVENT DATE: 20180507
